FAERS Safety Report 6742147-0 (Version None)
Quarter: 2010Q2

REPORT INFORMATION
  Report Type: 
  Country: None (occurrence: None)
  Receive Date: 20100526
  Receipt Date: 20100521
  Transmission Date: 20101027
  Serious: Yes (Disabling, Other)
  Sender: FDA-Public Use
  Company Number: US-ELI_LILLY_AND_COMPANY-US201005006115

PATIENT
  Sex: Male
  Weight: 104.31 kg

DRUGS (4)
  1. HUMALOG [Suspect]
     Indication: DIABETES MELLITUS
     Dosage: UNK, AS NEEDED
  2. HUMALOG [Suspect]
     Dosage: UNK, AS NEEDED
  3. HUMALOG [Suspect]
     Dosage: 15 U, UNK
     Dates: start: 20100521, end: 20100521
  4. HUMALOG [Suspect]
     Dosage: UNK, AS NEEDED

REACTIONS (16)
  - BASAL CELL CARCINOMA [None]
  - BLOOD GLUCOSE DECREASED [None]
  - BLOOD GLUCOSE INCREASED [None]
  - CATARACT [None]
  - DEVICE FAILURE [None]
  - DISABILITY [None]
  - EYE LASER SURGERY [None]
  - HUNGER [None]
  - INJECTION SITE HAEMATOMA [None]
  - INJECTION SITE PAIN [None]
  - LIMB TRAUMATIC AMPUTATION [None]
  - MALAISE [None]
  - STAPHYLOCOCCAL INFECTION [None]
  - TOE AMPUTATION [None]
  - WEIGHT INCREASED [None]
  - WRONG TECHNIQUE IN DRUG USAGE PROCESS [None]
